FAERS Safety Report 23463772 (Version 2)
Quarter: 2024Q1

REPORT INFORMATION
  Report Type: Spontaneous
  Country: IT (occurrence: None)
  Receive Date: 20240201
  Receipt Date: 20240208
  Transmission Date: 20240410
  Serious: Yes (Other)
  Sender: FDA-Public Use
  Company Number: IT-ROCHE-3497065

PATIENT
  Age: 53 Year
  Sex: Female

DRUGS (5)
  1. OCREVUS [Suspect]
     Active Substance: OCRELIZUMAB
     Indication: Product used for unknown indication
     Route: 065
     Dates: start: 2020
  2. EXEMESTANE [Concomitant]
     Active Substance: EXEMESTANE
     Dates: start: 202302
  3. ENANTONE LP [Concomitant]
     Active Substance: LEUPROLIDE ACETATE
     Dates: start: 202302
  4. ALENDRONATE SODIUM [Concomitant]
     Active Substance: ALENDRONATE SODIUM
     Dates: start: 202302
  5. CHOLECALCIFEROL [Concomitant]
     Active Substance: CHOLECALCIFEROL

REACTIONS (2)
  - Invasive ductal breast carcinoma [Unknown]
  - Invasive breast carcinoma [Unknown]

NARRATIVE: CASE EVENT DATE: 20230213
